FAERS Safety Report 7334450-0 (Version None)
Quarter: 2011Q1

REPORT INFORMATION
  Report Type: 
  Country: None (occurrence: None)
  Receive Date: 20110307
  Receipt Date: 20110228
  Transmission Date: 20110831
  Serious: Yes (Other)
  Sender: FDA-Public Use
  Company Number: US-AMGEN-USASP2011011368

PATIENT
  Age: 51 Year
  Sex: Female

DRUGS (2)
  1. CELEBREX [Concomitant]
  2. ENBREL [Suspect]
     Indication: RHEUMATOID ARTHRITIS
     Dosage: 50 MG, QWK
     Dates: start: 19990201, end: 20090201

REACTIONS (2)
  - PAIN IN EXTREMITY [None]
  - CATARACT [None]
